FAERS Safety Report 15313155 (Version 1)
Quarter: 2018Q3

REPORT INFORMATION
  Report Type: Report from Study
  Country: US (occurrence: US)
  Receive Date: 20180823
  Receipt Date: 20180823
  Transmission Date: 20181010
  Serious: Yes (Other)
  Sender: FDA-Public Use
  Company Number: US-GILEAD-2018-0358342

PATIENT
  Age: 66 Year
  Sex: Male

DRUGS (8)
  1. TIVICAY [Concomitant]
     Active Substance: DOLUTEGRAVIR SODIUM
     Dates: start: 2015
  2. PREZISTA [Concomitant]
     Active Substance: DARUNAVIR ETHANOLATE
     Dates: start: 2003
  3. EMTRICITABINE/TENOFOVIR ALAFENAMIDE [Suspect]
     Active Substance: EMTRICITABINE\TENOFOVIR
     Indication: HIV INFECTION
     Dosage: UNK
     Route: 065
     Dates: start: 2015
  4. VITAMIN D                          /00107901/ [Concomitant]
     Active Substance: ERGOCALCIFEROL
  5. SELZENTRY [Concomitant]
     Active Substance: MARAVIROC
     Dates: start: 2018
  6. SINGULAIR [Concomitant]
     Active Substance: MONTELUKAST SODIUM
  7. NORVIR [Concomitant]
     Active Substance: RITONAVIR
     Dates: start: 2004
  8. GABAPENTIN. [Concomitant]
     Active Substance: GABAPENTIN

REACTIONS (3)
  - T-lymphocyte count decreased [Unknown]
  - Drug resistance [Unknown]
  - Blood HIV RNA [Unknown]

NARRATIVE: CASE EVENT DATE: 20180711
